FAERS Safety Report 17649292 (Version 1)
Quarter: 2020Q2

REPORT INFORMATION
  Report Type: Spontaneous
  Country: US (occurrence: US)
  Receive Date: 20200409
  Receipt Date: 20200409
  Transmission Date: 20200713
  Serious: Yes (Death, Other)
  Sender: FDA-Public Use
  Company Number: US-SA-2020SA088064

PATIENT
  Age: 58 Year
  Sex: Male

DRUGS (5)
  1. CHLORMETHINE [Concomitant]
     Active Substance: MECHLORETHAMINE
     Indication: CUTANEOUS T-CELL LYMPHOMA STAGE II
     Route: 061
  2. IMMUNOGLOBULIN I.V [Concomitant]
     Active Substance: HUMAN IMMUNOGLOBULIN G
     Indication: CUTANEOUS T-CELL LYMPHOMA STAGE II
     Route: 042
  3. DUPILUMAB [Suspect]
     Active Substance: DUPILUMAB
     Dosage: 300 MG, QOW
     Route: 058
  4. DUPILUMAB [Suspect]
     Active Substance: DUPILUMAB
     Indication: CUTANEOUS T-CELL LYMPHOMA STAGE II
     Dosage: 600 MG LOADING DOSE
  5. BEXAROTENE. [Concomitant]
     Active Substance: BEXAROTENE
     Indication: CUTANEOUS T-CELL LYMPHOMA STAGE II
     Route: 048

REACTIONS (7)
  - Disease progression [Fatal]
  - Fatigue [Fatal]
  - Lymphadenopathy [Fatal]
  - Pruritus [Fatal]
  - Off label use [Fatal]
  - Cutaneous T-cell lymphoma stage IV [Fatal]
  - Body surface area increased [Fatal]
